FAERS Safety Report 17906323 (Version 1)
Quarter: 2020Q2

REPORT INFORMATION
  Report Type: Spontaneous
  Country: US (occurrence: US)
  Receive Date: 20200616
  Receipt Date: 20200616
  Transmission Date: 20200714
  Serious: No
  Sender: FDA-Public Use
  Company Number: US-ROCHE-2359362

PATIENT
  Sex: Female

DRUGS (12)
  1. LEVOTHYROXINE SODIUM. [Concomitant]
     Active Substance: LEVOTHYROXINE SODIUM
  2. ZANTAC [Concomitant]
     Active Substance: RANITIDINE HYDROCHLORIDE
  3. IBUPROFEN. [Concomitant]
     Active Substance: IBUPROFEN
  4. TRESIBA [Concomitant]
     Active Substance: INSULIN DEGLUDEC
  5. CALCIUM [Concomitant]
     Active Substance: CALCIUM
  6. PREDNISONE. [Concomitant]
     Active Substance: PREDNISONE
  7. GABAPENTIN. [Concomitant]
     Active Substance: GABAPENTIN
  8. ACTEMRA [Suspect]
     Active Substance: TOCILIZUMAB
     Indication: TEMPORAL ARTERITIS
     Route: 058
  9. ASPIRIN [ACETYLSALICYLIC ACID] [Concomitant]
     Active Substance: ASPIRIN
  10. LISINOPRIL. [Concomitant]
     Active Substance: LISINOPRIL
  11. NOVOLOG [Concomitant]
     Active Substance: INSULIN ASPART
  12. TRULANCE [Concomitant]
     Active Substance: PLECANATIDE

REACTIONS (1)
  - Thrombocytopenia [Not Recovered/Not Resolved]
